FAERS Safety Report 19974376 (Version 1)
Quarter: 2021Q4

REPORT INFORMATION
  Report Type: Report from Study
  Country: US (occurrence: US)
  Receive Date: 20211020
  Receipt Date: 20211020
  Transmission Date: 20220303
  Serious: Yes (Other)
  Sender: FDA-Public Use
  Company Number: US-BAYER-2021A232794

PATIENT

DRUGS (1)
  1. ALKA SELTZER PLUS SEVERE SINUS CONGESTION ALLERGY AND COUGH [Suspect]
     Active Substance: ACETAMINOPHEN\DEXTROMETHORPHAN HYDROBROMIDE\DOXYLAMINE SUCCINATE\PHENYLEPHRINE
     Route: 048

REACTIONS (2)
  - Foreign body in throat [Unknown]
  - Product use complaint [Unknown]
